FAERS Safety Report 5452001-2 (Version None)
Quarter: 2007Q3

REPORT INFORMATION
  Report Type: 
  Country: None (occurrence: None)
  Receive Date: 20070813
  Receipt Date: 20060628
  Transmission Date: 20080115
  Serious: No
  Sender: FDA-Public Use
  Company Number: 20063072

PATIENT
  Sex: Female

DRUGS (4)
  1. LIORESAL [Suspect]
     Indication: MUSCLE SPASTICITY
     Dosage: MCG, DAILY, INTRATHECAL
     Route: 037
  2. FENTANYL CITRATE [Concomitant]
  3. CLONIDINE [Concomitant]
  4. MARCAINE [Concomitant]

REACTIONS (1)
  - DRUG INEFFECTIVE [None]
